FAERS Safety Report 5924838-4 (Version None)
Quarter: 2008Q4

REPORT INFORMATION
  Report Type: 
  Country: None (occurrence: None)
  Receive Date: 20081017
  Receipt Date: 20081017
  Transmission Date: 20090506
  Serious: Yes (Hospitalization)
  Sender: FDA-Public Use
  Company Number: None

PATIENT
  Sex: Female
  Weight: 89.4 kg

DRUGS (1)
  1. NOLVADEX [Suspect]
     Dosage: 1500 MG
     Dates: end: 20081016

REACTIONS (3)
  - ENDOMETRIAL DISORDER [None]
  - MENORRHAGIA [None]
  - UTERINE POLYP [None]
